FAERS Safety Report 9559341 (Version 3)
Quarter: 2014Q2

REPORT INFORMATION
  Report Type: Spontaneous
  Country: US (occurrence: None)
  Receive Date: 20130906
  Receipt Date: 20140416
  Transmission Date: 20141212
  Serious: Yes (Other)
  Sender: FDA-Public Use
  Company Number: 163-POMAL-13052078

PATIENT
  Age: 52 Year
  Sex: Male
  Weight: 97.52 kg

DRUGS (21)
  1. POMALYST [Suspect]
     Indication: PLASMA CELL MYELOMA
     Dosage: 21 IN 21 D
     Route: 048
     Dates: start: 20130425, end: 20130502
  2. CARFILZOMIB [Suspect]
     Indication: PLASMA CELL MYELOMA
     Dosage: AS DIRECTED, IV
     Route: 042
     Dates: start: 20130425
  3. METOPROLOL XL (METOPROLOL) (UNKNOWN) [Concomitant]
  4. MONTELUKAST (MONTELUKAST) (UNKNOWN) [Concomitant]
  5. PANTOPRAZOLE [Concomitant]
  6. SERTRALINE (SERTRALINE) (UNKNOWN) [Concomitant]
  7. VALACYCLOVIR (VALACYCLOVIR HYDROCHLORIDE) (UNKNOWN) [Concomitant]
  8. RENAL VITAMIN (OTHER PLAIN VITAMIN PREPARATIONS) (TABLETS) [Concomitant]
  9. SEVELAMER (SEVELAMER) (TABLETS) [Concomitant]
  10. DEXAMETHASONE (DEXAMETHASONE) (TABLETS) [Concomitant]
  11. OXYCODONE ER (OXYCODONE HYDROCHLORIDE) (UNKNOWN) [Concomitant]
  12. FENTANYL (FENTANYL) (UNKNOWN) (FENTANYL) [Concomitant]
  13. HYDROCODONE/APAP (VICODIN) (UNKNOWN) [Concomitant]
  14. SENNA (SENNA) (UNKNOWN) [Concomitant]
  15. SODIUM CHLORIDE [Concomitant]
  16. GRANISETRON HCL (GRANISETRON HYDROCHLORIDE) [Concomitant]
  17. DIPHENHYDRAMINE HCL (DIPHENHYDRAMINE HYDROCHLORIDE) [Concomitant]
  18. HYDROCORTISONE SODIUM SUCCINATE [Concomitant]
  19. METHYLPREDNISOLONE SODIUM SUCCINATE [Concomitant]
  20. DEXAMETHASONE SODIUM PHOSPHATE [Concomitant]
  21. FLUCONAZOLE (FLUCONAZOLE) (UNKNOWN) [Concomitant]

REACTIONS (3)
  - Muscle twitching [None]
  - Tremor [None]
  - Disorientation [None]
